FAERS Safety Report 16013916 (Version 2)
Quarter: 2019Q1

REPORT INFORMATION
  Report Type: Report from Study
  Country: TW (occurrence: TW)
  Receive Date: 20190227
  Receipt Date: 20190312
  Transmission Date: 20190418
  Serious: Yes (Hospitalization)
  Sender: FDA-Public Use
  Company Number: TW-JNJFOC-20190226710

PATIENT
  Age: 60 Year
  Sex: Male
  Weight: 60 kg

DRUGS (15)
  1. STELARA [Suspect]
     Active Substance: USTEKINUMAB
     Indication: PSORIASIS
     Route: 058
     Dates: start: 20150624, end: 20181114
  2. CORTISONE [Concomitant]
     Active Substance: CORTISONE\HYDROCORTISONE
     Route: 065
  3. SEVIKAR HCT [Concomitant]
     Active Substance: AMLODIPINE BESYLATE\HYDROCHLOROTHIAZIDE\OLMESARTAN MEDOXOMIL
     Route: 065
  4. SPIRONOLACTONE. [Concomitant]
     Active Substance: SPIRONOLACTONE
     Route: 065
  5. BISOPROLOL [Concomitant]
     Active Substance: BISOPROLOL
     Route: 065
  6. CLONAZEPAM. [Concomitant]
     Active Substance: CLONAZEPAM
     Dosage: 2 MG AT NIGHT(HS)
     Route: 065
  7. GLUCOMET [Concomitant]
     Route: 065
  8. AMLODIPINE [Concomitant]
     Active Substance: AMLODIPINE BESYLATE
     Route: 065
  9. FENOFIBRATE. [Concomitant]
     Active Substance: FENOFIBRATE
     Route: 065
  10. ZOLPIDEM [Concomitant]
     Active Substance: ZOLPIDEM\ZOLPIDEM TARTRATE
     Dosage: 10 MG AT NIGHT(HS)
     Route: 065
  11. ROSUVASTATIN. [Concomitant]
     Active Substance: ROSUVASTATIN
     Route: 065
  12. ASPIRIN. [Concomitant]
     Active Substance: ASPIRIN
     Route: 065
  13. CIMETIDINE [Concomitant]
     Active Substance: CIMETIDINE
     Route: 065
  14. PIRACETAM [Concomitant]
     Active Substance: PIRACETAM
     Route: 065
  15. ESTAZOLAM. [Concomitant]
     Active Substance: ESTAZOLAM
     Dosage: ESTAZOLAM 2MG HS (AT NIGHT)
     Route: 065

REACTIONS (1)
  - Haemorrhagic stroke [Unknown]

NARRATIVE: CASE EVENT DATE: 201811
